FAERS Safety Report 23856059 (Version 1)
Quarter: 2024Q2

REPORT INFORMATION
  Report Type: Spontaneous
  Country: US (occurrence: US)
  Receive Date: 20240515
  Receipt Date: 20240515
  Transmission Date: 20240716
  Serious: No
  Sender: FDA-Public Use
  Company Number: US-Harrow Eye-2156976

PATIENT
  Sex: Female

DRUGS (3)
  1. NATACYN [Suspect]
     Active Substance: NATAMYCIN
     Indication: Ulcerative keratitis
     Route: 047
  2. NATACYN [Suspect]
     Active Substance: NATAMYCIN
     Indication: Eye infection fungal
  3. VIGAMOX [Suspect]
     Active Substance: MOXIFLOXACIN HYDROCHLORIDE
     Route: 047

REACTIONS (3)
  - Corneal disorder [Unknown]
  - Drug ineffective [Unknown]
  - Incorrect dose administered [Unknown]
